FAERS Safety Report 5145241-3 (Version None)
Quarter: 2006Q4

REPORT INFORMATION
  Report Type: 
  Country: None (occurrence: None)
  Receive Date: 20060912
  Receipt Date: 20051201
  Transmission Date: 20070319
  Serious: Yes (Hospitalization)
  Sender: FDA-Public Use
  Company Number: 2005-BP-15479BP

PATIENT
  Age: 42 Year
  Sex: Female
  Weight: 48 kg

DRUGS (3)
  1. VIRAMUNE [Suspect]
     Indication: HIV INFECTION
     Dosage: SEE IMAGE
     Route: 048
     Dates: start: 20050628, end: 20050712
  2. VIRAMUNE [Suspect]
     Indication: HIV INFECTION
     Dosage: SEE IMAGE
     Route: 048
     Dates: start: 20050712, end: 20050808
  3. EPZICOM [Concomitant]

REACTIONS (3)
  - ERYTHEMA MULTIFORME [None]
  - OESOPHAGEAL CANDIDIASIS [None]
  - PHARYNGITIS [None]
